FAERS Safety Report 7016119-5 (Version None)
Quarter: 2010Q3

REPORT INFORMATION
  Report Type: 
  Country: None (occurrence: None)
  Receive Date: 20100923
  Receipt Date: 20100917
  Transmission Date: 20110219
  Serious: Yes (Hospitalization)
  Sender: FDA-Public Use
  Company Number: 2010SP024532

PATIENT
  Age: 48 Year
  Sex: Male

DRUGS (13)
  1. PEGINTERFERON ALFA-2B [Suspect]
     Indication: HEPATITIS C
     Dosage: 120 MCG;QW;SC; 60 MCG;QW;SC
     Route: 058
     Dates: start: 20100224, end: 20100317
  2. PEGINTERFERON ALFA-2B [Suspect]
     Indication: HEPATITIS C
     Dosage: 120 MCG;QW;SC; 60 MCG;QW;SC
     Route: 058
     Dates: start: 20100324
  3. RIBAVIRIN [Suspect]
     Indication: HEPATITIS C
     Dosage: 1000 MG;QD;PO
     Route: 048
     Dates: start: 20100224
  4. ELTROMBOPAG (ELTROMBOPAG) [Suspect]
     Indication: THROMBOCYTOPENIA
     Dosage: 25 MG;QD; PO; PO; 75 MG;QD;PO
     Route: 048
     Dates: start: 20100113, end: 20100126
  5. ELTROMBOPAG (ELTROMBOPAG) [Suspect]
     Indication: THROMBOCYTOPENIA
     Dosage: 25 MG;QD; PO; PO; 75 MG;QD;PO
     Route: 048
     Dates: start: 20100127, end: 20100209
  6. ELTROMBOPAG (ELTROMBOPAG) [Suspect]
     Indication: THROMBOCYTOPENIA
     Dosage: 25 MG;QD; PO; PO; 75 MG;QD;PO
     Route: 048
     Dates: start: 20100210, end: 20100223
  7. BLINDED ELTROMBOPAG (ELTROMBOPAG) [Suspect]
     Indication: THROMBOCYTOPENIA
     Dosage: 75 MG;QD;PO; 100 MG;QD
     Route: 048
     Dates: start: 20100224, end: 20100302
  8. BLINDED ELTROMBOPAG (ELTROMBOPAG) [Suspect]
     Indication: THROMBOCYTOPENIA
     Dosage: 75 MG;QD;PO; 100 MG;QD
     Route: 048
     Dates: start: 20100303
  9. INSULIN ASPART (CON.) [Concomitant]
  10. INTERFERON ALFA-2B (CON.) [Concomitant]
  11. SPASFON (CON.) [Concomitant]
  12. DEXTROPROPOXYPHENE (CON.) [Concomitant]
  13. PARACETAMOL (CON.) [Concomitant]

REACTIONS (6)
  - COUGH [None]
  - ILEITIS [None]
  - LYMPHADENITIS [None]
  - PULMONARY TUBERCULOSIS [None]
  - SPEECH DISORDER [None]
  - THROMBOCYTOPENIA [None]
